FAERS Safety Report 17562081 (Version 1)
Quarter: 2020Q1

REPORT INFORMATION
  Report Type: Spontaneous
  Country: ES (occurrence: ES)
  Receive Date: 20200319
  Receipt Date: 20200319
  Transmission Date: 20200409
  Serious: Yes (Life-Threatening, Hospitalization)
  Sender: FDA-Public Use
  Company Number: ES-009507513-2003ESP006413

PATIENT
  Age: 63 Year

DRUGS (2)
  1. MIRTAZAPINE. [Suspect]
     Active Substance: MIRTAZAPINE
     Indication: DEPRESSION
     Dosage: 15 MILLIGRAM, QD
     Dates: start: 20200220, end: 20200226
  2. ALPRAZOLAM. [Concomitant]
     Active Substance: ALPRAZOLAM

REACTIONS (5)
  - Anxiety [Recovering/Resolving]
  - Renal impairment [Recovering/Resolving]
  - Cardiac dysfunction [Recovering/Resolving]
  - Agitation [Recovering/Resolving]
  - Seizure [Recovering/Resolving]

NARRATIVE: CASE EVENT DATE: 20200228
